FAERS Safety Report 7935039-2 (Version None)
Quarter: 2011Q4

REPORT INFORMATION
  Report Type: 
  Country: None (occurrence: None)
  Receive Date: 20111117
  Receipt Date: 20111103
  Transmission Date: 20120403
  Serious: Yes (Hospitalization, Other)
  Sender: FDA-Public Use
  Company Number: 2011MA016050

PATIENT
  Age: 78 Year
  Sex: Female
  Weight: 55.3388 kg

DRUGS (16)
  1. BETA BLOCKER [Concomitant]
  2. CARDIZEM CD [Concomitant]
  3. PERCOCET [Concomitant]
  4. NORCO 5/325 [Concomitant]
  5. SENNA [Concomitant]
  6. SIMVASTATIN [Concomitant]
  7. HUMULIN R [Concomitant]
  8. DIGOXIN [Suspect]
     Indication: ATRIAL FIBRILLATION
     Dosage: 0.125 MG;QD;PO
     Route: 048
     Dates: start: 20070330, end: 20070828
  9. PREVACID [Concomitant]
  10. LASIX [Concomitant]
  11. COLACE [Concomitant]
  12. LISINOPRIL [Concomitant]
  13. TOPROL-XL [Concomitant]
  14. VERAPAMIL [Concomitant]
  15. COUMADIN [Concomitant]
  16. PROZAC [Concomitant]

REACTIONS (27)
  - XANTHOPSIA [None]
  - PAIN [None]
  - DIARRHOEA [None]
  - WEIGHT DECREASED [None]
  - EMOTIONAL DISORDER [None]
  - BRADYCARDIA [None]
  - ELECTROCARDIOGRAM ST SEGMENT DEPRESSION [None]
  - CONFUSIONAL STATE [None]
  - JOINT STIFFNESS [None]
  - ATRIAL FIBRILLATION [None]
  - ELECTROCARDIOGRAM T WAVE INVERSION [None]
  - ANXIETY [None]
  - FATIGUE [None]
  - POST PROCEDURAL COMPLICATION [None]
  - DECREASED APPETITE [None]
  - DEPRESSION [None]
  - ESSENTIAL HYPERTENSION [None]
  - HYPOAESTHESIA [None]
  - MUSCULOSKELETAL DISCOMFORT [None]
  - NAUSEA [None]
  - OEDEMA [None]
  - TOXICITY TO VARIOUS AGENTS [None]
  - UNEVALUABLE EVENT [None]
  - HYPERTENSION [None]
  - PALPITATIONS [None]
  - ARTHRALGIA [None]
  - HYPOTENSION [None]
